FAERS Safety Report 18284764 (Version 1)
Quarter: 2020Q3

REPORT INFORMATION
  Report Type: Report from Study
  Country: PK (occurrence: PK)
  Receive Date: 20200918
  Receipt Date: 20200918
  Transmission Date: 20201103
  Serious: Yes (Death)
  Sender: FDA-Public Use
  Company Number: NVSC2020PK254872

PATIENT
  Age: 70 Year
  Sex: Male

DRUGS (2)
  1. EXFORGE HCT [Suspect]
     Active Substance: AMLODIPINE BESYLATE\HYDROCHLOROTHIAZIDE\VALSARTAN
     Indication: HYPERTENSION
     Dosage: 160/25/10 MG (AMLODIPINE/HYDROCHLOROTHIAZIDE/VALSARTAN)  (1 OD)
     Route: 048
     Dates: start: 20180502
  2. INSUGET [Concomitant]
     Indication: DIABETES MELLITUS
     Dosage: 70/30 (25U:IN MORNING AND 25 U IN EVENING)
     Route: 058
     Dates: start: 20180502

REACTIONS (3)
  - Generalised oedema [Unknown]
  - Dyspnoea [Unknown]
  - Cardiac failure congestive [Fatal]
